FAERS Safety Report 16741286 (Version 1)
Quarter: 2019Q3

REPORT INFORMATION
  Report Type: Spontaneous
  Country: US (occurrence: US)
  Receive Date: 20190709
  Receipt Date: 20190709
  Transmission Date: 20191005
  Serious: Yes (Hospitalization)
  Sender: FDA-Public Use
  Company Number: None

PATIENT
  Age: 72 Year
  Sex: Male

DRUGS (1)
  1. SUTENT [Suspect]
     Active Substance: SUNITINIB MALATE
     Route: 048
     Dates: start: 201905

REACTIONS (7)
  - Therapy cessation [None]
  - Balance disorder [None]
  - Fatigue [None]
  - Hypersomnia [None]
  - Dehydration [None]
  - Platelet count decreased [None]
  - Confusional state [None]

NARRATIVE: CASE EVENT DATE: 20190613
